FAERS Safety Report 15770077 (Version 1)
Quarter: 2018Q4

REPORT INFORMATION
  Report Type: Spontaneous
  Country: US (occurrence: US)
  Receive Date: 20181227
  Receipt Date: 20181227
  Transmission Date: 20190205
  Serious: Yes (Life-Threatening, Disabling)
  Sender: FDA-Public Use
  Company Number: None

PATIENT
  Age: 64 Year
  Sex: Female
  Weight: 67 kg

DRUGS (1)
  1. POLOCAINE [Suspect]
     Active Substance: MEPIVACAINE HYDROCHLORIDE
     Indication: DENTAL LOCAL ANAESTHESIA
     Dosage: ?          QUANTITY:1 AMPULE;OTHER FREQUENCY:1;?
     Route: 042
     Dates: start: 20180117, end: 20180117

REACTIONS (34)
  - Cerebrovascular accident [None]
  - Asthenia [None]
  - Pain [None]
  - Skin swelling [None]
  - Grunting [None]
  - Aphasia [None]
  - Headache [None]
  - Confusional state [None]
  - Eyelid function disorder [None]
  - Concussion [None]
  - Head discomfort [None]
  - Bradyphrenia [None]
  - Balance disorder [None]
  - Gait disturbance [None]
  - Nausea [None]
  - Tinnitus [None]
  - Stress urinary incontinence [None]
  - Coordination abnormal [None]
  - Peripheral nerve paresis [None]
  - Adverse reaction [None]
  - Pain in jaw [None]
  - Memory impairment [None]
  - Fatigue [None]
  - Musculoskeletal disorder [None]
  - Movement disorder [None]
  - Wrong technique in product usage process [None]
  - Hypersomnia [None]
  - Grip strength decreased [None]
  - Feeling abnormal [None]
  - Disturbance in attention [None]
  - Urinary incontinence [None]
  - Limb discomfort [None]
  - Paraesthesia [None]
  - Disorganised speech [None]

NARRATIVE: CASE EVENT DATE: 20180117
